FAERS Safety Report 6554541-1 (Version None)
Quarter: 2010Q1

REPORT INFORMATION
  Report Type: 
  Country: None (occurrence: None)
  Receive Date: 20100127
  Receipt Date: 20100119
  Transmission Date: 20100710
  Serious: Yes (Hospitalization)
  Sender: FDA-Public Use
  Company Number: PHHO2009DE13795

PATIENT
  Sex: Female

DRUGS (3)
  1. CERTICAN [Suspect]
     Indication: RENAL TRANSPLANT
     Dosage: 4.5MG
     Route: 048
     Dates: start: 20090930, end: 20091106
  2. MYFORTIC [Concomitant]
     Indication: RENAL TRANSPLANT
     Dosage: 1440MG
     Route: 048
     Dates: start: 20090705
  3. PREDNISONE [Concomitant]
     Indication: RENAL TRANSPLANT

REACTIONS (3)
  - BLOOD CREATININE INCREASED [None]
  - TRANSPLANT REJECTION [None]
  - TUBULOINTERSTITIAL NEPHRITIS [None]
